FAERS Safety Report 7811794-7 (Version None)
Quarter: 2011Q4

REPORT INFORMATION
  Report Type: 
  Country: None (occurrence: None)
  Receive Date: 20111013
  Receipt Date: 20111003
  Transmission Date: 20120403
  Serious: Yes (Hospitalization, Other)
  Sender: FDA-Public Use
  Company Number: IE-US-EMD SERONO, INC.-7081423

PATIENT
  Sex: Female

DRUGS (1)
  1. REBIF [Suspect]
     Indication: RELAPSING-REMITTING MULTIPLE SCLEROSIS
     Route: 058
     Dates: start: 20070903, end: 20110930

REACTIONS (6)
  - RIGHT VENTRICULAR FAILURE [None]
  - ARTHROPOD BITE [None]
  - CARDIOMEGALY [None]
  - PULMONARY HYPERTENSION [None]
  - TACHYCARDIA [None]
  - PERICARDIAL EFFUSION [None]
